FAERS Safety Report 4779485-7 (Version None)
Quarter: 2005Q3

REPORT INFORMATION
  Report Type: 
  Country: None (occurrence: None)
  Receive Date: 20050922
  Receipt Date: 20041104
  Transmission Date: 20060218
  Serious: Yes (Other)
  Sender: FDA-Public Use
  Company Number: 2004076111

PATIENT
  Sex: Female

DRUGS (7)
  1. ZYRTEC [Suspect]
     Indication: ILL-DEFINED DISORDER
  2. CYPROHEPTADINE HCL [Concomitant]
  3. CILEST (ETHINYLESTRADIOL, NORGETIMATE) [Concomitant]
  4. ALMOTRIPTAN MALATE (ALMOTRIPTAN MALATE) [Concomitant]
  5. AMOXICILLIN [Concomitant]
  6. FLUTICASONE PROPIONATE [Concomitant]
  7. MONTELUKAST SODIUM (MONTELUKAST SODIUM) [Concomitant]

REACTIONS (1)
  - SYNCOPE [None]
